FAERS Safety Report 4377366-4 (Version None)
Quarter: 2004Q2

REPORT INFORMATION
  Report Type: 
  Country: None (occurrence: None)
  Receive Date: 20040615
  Receipt Date: 20040531
  Transmission Date: 20050107
  Serious: Yes (Other)
  Sender: FDA-Public Use
  Company Number: 200411938JP

PATIENT
  Age: 94 Year
  Sex: Female
  Weight: 33 kg

DRUGS (3)
  1. AMARYL [Suspect]
     Route: 048
  2. BLOPRESS [Concomitant]
  3. NORVASC [Concomitant]

REACTIONS (2)
  - BLOOD POTASSIUM INCREASED [None]
  - BLOOD UREA INCREASED [None]
